FAERS Safety Report 7472500-1 (Version None)
Quarter: 2011Q2

REPORT INFORMATION
  Report Type: 
  Country: None (occurrence: None)
  Receive Date: 20110502
  Receipt Date: 20110418
  Transmission Date: 20111010
  Serious: Yes (Hospitalization)
  Sender: FDA-Public Use
  Company Number: DSJ-2011-07463

PATIENT
  Age: 80 Year
  Sex: Female
  Weight: 64 kg

DRUGS (2)
  1. ECARD HD (HYDROCHLOROTHIAZIDE, CANDESARTAN CILEXETIL) (HYDROCHLOROTHIA [Concomitant]
  2. OLMESARTAN MEDOXOMIL [Suspect]
     Indication: ESSENTIAL HYPERTENSION
     Dosage: 20 MG, PER ORAL
     Route: 048
     Dates: start: 20100318

REACTIONS (3)
  - PERIPHERAL COLDNESS [None]
  - CHILLBLAINS [None]
  - CONDITION AGGRAVATED [None]
